FAERS Safety Report 7301903-0 (Version None)
Quarter: 2011Q1

REPORT INFORMATION
  Report Type: 
  Country: None (occurrence: None)
  Receive Date: 20110218
  Receipt Date: 20110210
  Transmission Date: 20110831
  Serious: Yes (Other)
  Sender: FDA-Public Use
  Company Number: CA-ROCHE-752503

PATIENT
  Sex: Female
  Weight: 54 kg

DRUGS (13)
  1. SALAZOPYRINE [Concomitant]
     Route: 048
  2. COD LIVER OIL [Concomitant]
  3. TOCILIZUMAB [Suspect]
     Dosage: DOSE LEVEL: 8 MG/KG
     Route: 042
     Dates: start: 20101014
  4. METHOTREXATE [Concomitant]
     Route: 048
  5. CALCIUM [Concomitant]
     Dosage: ONE TABLET AT BREAKFAST AND ONE AT SUPPER
     Route: 048
  6. TOCILIZUMAB [Suspect]
     Dosage: DOSE LEVEL: 8 MG/KG
     Route: 042
     Dates: start: 20101209
  7. PREDNISONE [Concomitant]
  8. PANTOLOC [Concomitant]
  9. FOLIC ACID [Concomitant]
  10. TOCILIZUMAB [Suspect]
     Dosage: DOSE LEVEL: 8 MG/KG
     Route: 042
     Dates: start: 20100916
  11. TOCILIZUMAB [Suspect]
     Dosage: DOSE LEVEL: 8 MG/KG
     Route: 042
     Dates: start: 20101111
  12. TYLENOL [Concomitant]
  13. TOCILIZUMAB [Suspect]
     Indication: RHEUMATOID ARTHRITIS
     Route: 042
     Dates: start: 20100722

REACTIONS (9)
  - NASAL CONGESTION [None]
  - ASPARTATE AMINOTRANSFERASE INCREASED [None]
  - WHITE BLOOD CELL COUNT DECREASED [None]
  - MEAN CELL HAEMOGLOBIN DECREASED [None]
  - COLON CANCER [None]
  - BLOOD BILIRUBIN INCREASED [None]
  - MEAN CELL HAEMOGLOBIN CONCENTRATION DECREASED [None]
  - MEAN CELL VOLUME DECREASED [None]
  - RHINORRHOEA [None]
